FAERS Safety Report 18438580 (Version 2)
Quarter: 2021Q1

REPORT INFORMATION
  Report Type: Spontaneous
  Country: US (occurrence: US)
  Receive Date: 20201028
  Receipt Date: 20210111
  Transmission Date: 20210419
  Serious: Yes (Hospitalization)
  Sender: FDA-Public Use
  Company Number: US-BEXIMCO-2020BEX00156

PATIENT
  Sex: Female
  Weight: 86.18 kg

DRUGS (13)
  1. SIMVASTATIN. [Concomitant]
     Active Substance: SIMVASTATIN
  2. METFORMIN HYDROCHLORIDE. [Suspect]
     Active Substance: METFORMIN HYDROCHLORIDE
     Indication: TYPE 2 DIABETES MELLITUS
     Dosage: 2 TABLETS, 1X/DAY
     Dates: start: 2010, end: 202010
  3. ^AVIADE^ [Suspect]
     Active Substance: UNSPECIFIED INGREDIENT
     Dosage: UNK, 1X/DAY
  4. LASIX [Concomitant]
     Active Substance: FUROSEMIDE
  5. XANAX [Concomitant]
     Active Substance: ALPRAZOLAM
     Dosage: AT NIGHT
  6. METFORMIN HCL (ZYDUS MANUFACTURER) [Suspect]
     Active Substance: METFORMIN HYDROCHLORIDE
     Indication: TYPE 2 DIABETES MELLITUS
     Dosage: UNK, 3X/DAY
     Dates: start: 202010
  7. METFORMIN HCL (ZYDUS MANUFACTURER) [Suspect]
     Active Substance: METFORMIN HYDROCHLORIDE
     Dosage: UNK, 2X/DAY
     Dates: start: 202010
  8. ASPIRIN. [Concomitant]
     Active Substance: ASPIRIN
  9. COREG [Concomitant]
     Active Substance: CARVEDILOL
     Dosage: UNK, 2X/DAY
  10. ^K?LAWN^ [Concomitant]
  11. VOLTAREN [Concomitant]
     Active Substance: DICLOFENAC SODIUM
  12. NITROGLYCERIN. [Concomitant]
     Active Substance: NITROGLYCERIN
     Dosage: UNK, AS NEEDED
  13. UNSPECIFIED FOUR BLOOD PRESSURE MEDICATIONS [Concomitant]

REACTIONS (17)
  - Hypertension [Unknown]
  - Asthenia [Unknown]
  - Renal disorder [Unknown]
  - Visual impairment [Unknown]
  - Muscular weakness [Unknown]
  - Dizziness [Unknown]
  - Illness [Unknown]
  - Nasal congestion [Unknown]
  - Fatigue [Unknown]
  - Dehydration [Unknown]
  - Polyuria [Unknown]
  - Product dose omission issue [Recovered/Resolved]
  - Drug ineffective [Unknown]
  - Pneumonia viral [Unknown]
  - Headache [Unknown]
  - Feeling abnormal [Unknown]
  - Recalled product administered [Recovered/Resolved]

NARRATIVE: CASE EVENT DATE: 2019
